APPROVED DRUG PRODUCT: SCEMBLIX
Active Ingredient: ASCIMINIB HYDROCHLORIDE
Strength: EQ 100MG BASE
Dosage Form/Route: TABLET;ORAL
Application: N215358 | Product #003
Applicant: NOVARTIS PHARMACEUTICALS CORP
Approved: Apr 18, 2024 | RLD: Yes | RS: Yes | Type: RX

PATENTS:
Patent 12252479 | Expires: May 17, 2040
Patent 8829195 | Expires: Oct 29, 2035
Patent 12252478 | Expires: May 14, 2040
Patent 11407735 | Expires: May 14, 2040

EXCLUSIVITY:
Code: M-318 | Date: Oct 2, 2028
Code: NCE | Date: Oct 29, 2026
Code: ODE* | Date: Oct 29, 2028